FAERS Safety Report 8516710-0 (Version None)
Quarter: 2012Q2

REPORT INFORMATION
  Report Type: 
  Country: None (occurrence: None)
  Receive Date: 20120406
  Receipt Date: 20110118
  Transmission Date: 20120825
  Serious: Yes (Hospitalization, Other)
  Sender: FDA-Public Use
  Company Number: PHHY2010US84794

PATIENT
  Age: 28 Year
  Sex: Male
  Weight: 84 kg

DRUGS (9)
  1. TASIGNA [Suspect]
     Indication: CHRONIC MYELOID LEUKAEMIA
     Dosage: 300 MG, BID, ORAL : 300 MG, QD, ORAL : 300 MG, QD, ORAL : 800 MG, QD, ORAL : 300 MG/DAY
     Route: 048
     Dates: start: 20100823, end: 20101004
  2. TASIGNA [Suspect]
     Indication: CHRONIC MYELOID LEUKAEMIA
     Dosage: 300 MG, BID, ORAL : 300 MG, QD, ORAL : 300 MG, QD, ORAL : 800 MG, QD, ORAL : 300 MG/DAY
     Route: 048
     Dates: start: 20100831
  3. TASIGNA [Suspect]
     Indication: CHRONIC MYELOID LEUKAEMIA
     Dosage: 300 MG, BID, ORAL : 300 MG, QD, ORAL : 300 MG, QD, ORAL : 800 MG, QD, ORAL : 300 MG/DAY
     Route: 048
     Dates: start: 20100903
  4. TASIGNA [Suspect]
     Indication: CHRONIC MYELOID LEUKAEMIA
     Dosage: 300 MG, BID, ORAL : 300 MG, QD, ORAL : 300 MG, QD, ORAL : 800 MG, QD, ORAL : 300 MG/DAY
     Route: 048
     Dates: start: 20101012
  5. ZOSYN [Concomitant]
  6. FOLIC ACID [Concomitant]
  7. PERCOCET [Concomitant]
  8. HYDREA [Concomitant]
  9. ALLOPURINOL [Concomitant]

REACTIONS (15)
  - FEELING ABNORMAL [None]
  - THROMBOCYTOPENIA [None]
  - DYSPNOEA EXERTIONAL [None]
  - FATIGUE [None]
  - BACK PAIN [None]
  - GINGIVAL BLEEDING [None]
  - PYREXIA [None]
  - FEBRILE NEUTROPENIA [None]
  - BRADYCARDIA [None]
  - ANXIETY [None]
  - NAUSEA [None]
  - PALPITATIONS [None]
  - BLOOD PRESSURE DECREASED [None]
  - MUSCULOSKELETAL PAIN [None]
  - VISION BLURRED [None]
